FAERS Safety Report 22255054 (Version 1)
Quarter: 2023Q2

REPORT INFORMATION
  Report Type: Spontaneous
  Country: US (occurrence: None)
  Receive Date: 20230426
  Receipt Date: 20230426
  Transmission Date: 20230722
  Serious: Yes (Other)
  Sender: FDA-Public Use
  Company Number: None

PATIENT
  Age: 61 Year
  Sex: Female
  Weight: 90 kg

DRUGS (1)
  1. CLEAR EYES MAXIMUM ITCHY EYE RELIEF [Suspect]
     Active Substance: GLYCERIN\NAPHAZOLINE HYDROCHLORIDE\ZINC SULFATE
     Indication: Eye allergy
     Dosage: OTHER QUANTITY : 3 DROP(S);?FREQUENCY : AS NEEDED;?
     Route: 047
     Dates: start: 20230422, end: 20230425

REACTIONS (1)
  - Eye allergy [None]

NARRATIVE: CASE EVENT DATE: 20230425
